FAERS Safety Report 15008528 (Version 1)
Quarter: 2018Q2

REPORT INFORMATION
  Report Type: Spontaneous
  Country: US (occurrence: US)
  Receive Date: 20180522
  Receipt Date: 20180522
  Transmission Date: 20180711
  Serious: No
  Sender: FDA-Public Use
  Company Number: None

PATIENT
  Age: 42 Year
  Sex: Female

DRUGS (1)
  1. ORENCIA [Suspect]
     Active Substance: ABATACEPT
     Route: 058

REACTIONS (3)
  - Back pain [None]
  - Oropharyngeal pain [None]
  - Throat irritation [None]

NARRATIVE: CASE EVENT DATE: 20180522
